FAERS Safety Report 8558074-2 (Version None)
Quarter: 2012Q3

REPORT INFORMATION
  Report Type: 
  Country: None (occurrence: None)
  Receive Date: 20120801
  Receipt Date: 20120725
  Transmission Date: 20120928
  Serious: Yes (Hospitalization, Other)
  Sender: FDA-Public Use
  Company Number: JP-VERTEX PHARMACEUTICALS INC.-AE-2012-005993

PATIENT
  Age: 63 Year
  Sex: Female

DRUGS (14)
  1. RIBAVIRIN [Concomitant]
     Indication: HEPATITIS C
     Route: 048
     Dates: start: 20120409, end: 20120513
  2. RIBAVIRIN [Concomitant]
     Route: 048
     Dates: start: 20120521
  3. VOLTAREN [Concomitant]
     Route: 054
     Dates: start: 20120409, end: 20120409
  4. ZOLPIDEM [Concomitant]
     Route: 048
     Dates: start: 20120420, end: 20120501
  5. RIBAVIRIN [Concomitant]
     Route: 048
     Dates: start: 20120514, end: 20120520
  6. LOXONIN [Concomitant]
     Route: 048
     Dates: start: 20120409
  7. RABEPRAZOLE SODIUM [Concomitant]
     Route: 048
     Dates: start: 20120418
  8. PEGINTERFERON ALFA-2B [Concomitant]
     Indication: HEPATITIS C
     Route: 058
     Dates: start: 20120409
  9. SELBEX [Concomitant]
     Route: 048
     Dates: start: 20120409
  10. TELAVIC (TELAPREVIR) [Suspect]
     Route: 048
     Dates: start: 20120528, end: 20120603
  11. LOXONIN [Concomitant]
  12. ALENDRONATE SODIUM [Concomitant]
     Route: 048
     Dates: start: 20120424
  13. TELAVIC (TELAPREVIR) [Suspect]
     Indication: HEPATITIS C
     Route: 048
     Dates: start: 20120409, end: 20120527
  14. URSO 250 [Concomitant]
     Route: 048

REACTIONS (2)
  - HAEMOGLOBIN DECREASED [None]
  - DRUG ERUPTION [None]
